FAERS Safety Report 15363519 (Version 3)
Quarter: 2022Q1

REPORT INFORMATION
  Report Type: Spontaneous
  Country: HR (occurrence: HR)
  Receive Date: 20180907
  Receipt Date: 20220327
  Transmission Date: 20220423
  Serious: Yes (Hospitalization, Other)
  Sender: FDA-Public Use
  Company Number: PHHY2018HR087992

PATIENT
  Age: 26 Year
  Sex: Male

DRUGS (5)
  1. PANTOPRAZOLE [Interacting]
     Active Substance: PANTOPRAZOLE
     Indication: Product used for unknown indication
     Dosage: UNK
     Route: 065
  2. METHOTREXATE [Interacting]
     Active Substance: METHOTREXATE
     Indication: Acute lymphocytic leukaemia
     Dosage: 5000 MG/M2, UNK SECOND INFUSION)
     Route: 042
  3. KETOPROFEN [Interacting]
     Active Substance: KETOPROFEN
     Indication: Product used for unknown indication
     Dosage: UNK
     Route: 065
  4. CIPROFLOXACIN [Interacting]
     Active Substance: CIPROFLOXACIN
     Indication: Product used for unknown indication
     Dosage: UNK
     Route: 065
  5. PIPERACILLIN SODIUM\TAZOBACTAM SODIUM [Interacting]
     Active Substance: PIPERACILLIN SODIUM\TAZOBACTAM SODIUM
     Indication: Product used for unknown indication
     Dosage: UNK
     Route: 065

REACTIONS (13)
  - Acute kidney injury [Recovering/Resolving]
  - Agranulocytosis [Recovering/Resolving]
  - Neutropenia [Recovered/Resolved]
  - Posterior reversible encephalopathy syndrome [Recovering/Resolving]
  - Generalised tonic-clonic seizure [Recovered/Resolved]
  - Headache [Unknown]
  - Confusional state [Unknown]
  - Vomiting [Unknown]
  - Nausea [Unknown]
  - Drug-induced liver injury [Unknown]
  - Toxicity to various agents [Unknown]
  - Drug level decreased [Unknown]
  - Drug interaction [Unknown]
